FAERS Safety Report 16858626 (Version 1)
Quarter: 2019Q3

REPORT INFORMATION
  Report Type: Spontaneous
  Country: US (occurrence: US)
  Receive Date: 20190805
  Receipt Date: 20190805
  Transmission Date: 20191005
  Serious: No
  Sender: FDA-Public Use
  Company Number: None

PATIENT
  Sex: Female

DRUGS (1)
  1. TOBRAMYCIN (56AMP/28DAY) 300MG/5ML  LUPIN PHARMACEUTICALS [Suspect]
     Active Substance: TOBRAMYCIN
     Indication: PULMONARY NOCARDIOSIS
     Route: 055
     Dates: start: 201905

REACTIONS (2)
  - Stomatitis [None]
  - Ear congestion [None]
